FAERS Safety Report 6767809-0 (Version None)
Quarter: 2010Q2

REPORT INFORMATION
  Report Type: 
  Country: None (occurrence: None)
  Receive Date: 20100614
  Receipt Date: 20100608
  Transmission Date: 20101027
  Serious: Yes (Death, Hospitalization, Other)
  Sender: FDA-Public Use
  Company Number: PHHY2010US36938

PATIENT
  Sex: Male

DRUGS (1)
  1. NEORAL [Suspect]
     Indication: LIVER TRANSPLANT
     Dosage: 50 MG, BID
     Route: 048

REACTIONS (4)
  - DEATH [None]
  - GASTROINTESTINAL STROMAL TUMOUR [None]
  - GASTROINTESTINAL SURGERY [None]
  - RENAL CANCER [None]
